FAERS Safety Report 6437609-X (Version None)
Quarter: 2009Q4

REPORT INFORMATION
  Report Type: 
  Country: None (occurrence: None)
  Receive Date: 20091112
  Receipt Date: 20091103
  Transmission Date: 20100525
  Serious: No
  Sender: FDA-Public Use
  Company Number: FR-ELI_LILLY_AND_COMPANY-FR200911000813

PATIENT
  Age: 30 Year
  Sex: Male

DRUGS (2)
  1. ZYPREXA [Suspect]
     Indication: PERSECUTORY DELUSION
     Dosage: 5 MG, DAILY (1/D)
     Route: 048
     Dates: start: 20081101
  2. SEROPLEX [Concomitant]
     Indication: AFFECTIVE DISORDER

REACTIONS (1)
  - HAEMATURIA [None]
